FAERS Safety Report 10009781 (Version 1)
Quarter: 2014Q1

REPORT INFORMATION
  Report Type: Spontaneous
  Country: US (occurrence: US)
  Receive Date: 20140312
  Receipt Date: 20140312
  Transmission Date: 20141002
  Serious: Yes (Other)
  Sender: FDA-Public Use
  Company Number: US-INCYTE CORPORATION-2013IN000280

PATIENT
  Sex: Female

DRUGS (3)
  1. JAKAFI [Suspect]
     Indication: MYELOFIBROSIS
     Dosage: 15 MG, BID
     Route: 048
     Dates: start: 201202, end: 2013
  2. HYDROXYUREA [Suspect]
     Dosage: UNK
     Dates: start: 201301, end: 2013
  3. ASPIRIN [Concomitant]
     Dosage: 81 MG, UNK
     Dates: end: 2013

REACTIONS (2)
  - Platelet count decreased [Unknown]
  - Weight increased [Unknown]
